FAERS Safety Report 15101256 (Version 1)
Quarter: 2018Q3

REPORT INFORMATION
  Report Type: Spontaneous
  Country: FR (occurrence: FR)
  Receive Date: 20180703
  Receipt Date: 20180703
  Transmission Date: 20181010
  Serious: Yes (Other)
  Sender: FDA-Public Use
  Company Number: PHHY2018FR034619

PATIENT
  Age: 37 Year
  Sex: Female

DRUGS (3)
  1. INFLIXIMAB [Suspect]
     Active Substance: INFLIXIMAB
     Dosage: 5 MG/KG, UNK (TWO INFUSIONS TWO WEEKS APART)
     Route: 041
  2. METHOTREXATE. [Suspect]
     Active Substance: METHOTREXATE
     Indication: NEUROSARCOIDOSIS
     Dosage: 10 MG, QW (RANGE 7.5?20 MG/WEEK)
     Route: 065
  3. INFLIXIMAB [Suspect]
     Active Substance: INFLIXIMAB
     Indication: NEUROSARCOIDOSIS
     Dosage: 3 MG/KG, UNK (TWO INFUSIONS TWO WEEKS APART)
     Route: 042

REACTIONS (2)
  - Cytomegalovirus infection [Unknown]
  - Product use in unapproved indication [Unknown]
